FAERS Safety Report 7785957-3 (Version None)
Quarter: 2011Q3

REPORT INFORMATION
  Report Type: 
  Country: None (occurrence: None)
  Receive Date: 20110929
  Receipt Date: 20110922
  Transmission Date: 20111222
  Serious: Yes (Hospitalization, Other)
  Sender: FDA-Public Use
  Company Number: IT-PFIZER INC-2011225789

PATIENT
  Age: 58 Year
  Sex: Male

DRUGS (1)
  1. SIROLIMUS [Suspect]
     Indication: IMMUNOSUPPRESSION
     Dosage: UNK

REACTIONS (1)
  - DIAPHRAGMATIC RUPTURE [None]
